FAERS Safety Report 4412232-7 (Version None)
Quarter: 2004Q3

REPORT INFORMATION
  Report Type: 
  Country: None (occurrence: None)
  Receive Date: 20040727
  Receipt Date: 20040719
  Transmission Date: 20050211
  Serious: Yes (Hospitalization)
  Sender: FDA-Public Use
  Company Number: US-JNJFOC-20040705095

PATIENT
  Age: 66 Year
  Sex: Female

DRUGS (7)
  1. IMODIUM A-D [Suspect]
     Indication: DIARRHOEA
     Dosage: 2 MG, 1 IN 1 TOTAL, ORAL
     Route: 048
     Dates: start: 20031001, end: 20031001
  2. GLUCOPHAGE [Concomitant]
  3. HUMULIN 70/30 [Concomitant]
  4. LOTENSIN [Concomitant]
  5. PRAVACHOL [Concomitant]
  6. ZYRTEC [Concomitant]
  7. CELEBREX [Concomitant]

REACTIONS (3)
  - COLD SWEAT [None]
  - DYSPNOEA [None]
  - FEELING HOT [None]
